FAERS Safety Report 16532055 (Version 1)
Quarter: 2019Q3

REPORT INFORMATION
  Report Type: Spontaneous
  Country: TW (occurrence: TW)
  Receive Date: 20190705
  Receipt Date: 20190705
  Transmission Date: 20191004
  Serious: Yes (Other)
  Sender: FDA-Public Use
  Company Number: TW-BAYER-2019-123200

PATIENT
  Age: 63 Year
  Sex: Male

DRUGS (2)
  1. NEXAVAR [Suspect]
     Active Substance: SORAFENIB
     Dosage: UNK
     Dates: start: 201705
  2. STIVARGA [Suspect]
     Active Substance: REGORAFENIB
     Dosage: UNK
     Dates: start: 201804

REACTIONS (3)
  - Palmar-plantar erythrodysaesthesia syndrome [None]
  - Metastases to lung [None]
  - Alopecia [None]

NARRATIVE: CASE EVENT DATE: 201803
